FAERS Safety Report 4375698-7 (Version None)
Quarter: 2004Q2

REPORT INFORMATION
  Report Type: 
  Country: None (occurrence: None)
  Receive Date: 20040607
  Receipt Date: 20040526
  Transmission Date: 20050107
  Serious: Yes (Hospitalization)
  Sender: FDA-Public Use
  Company Number: 2004-BP-01541NB

PATIENT
  Age: 70 Year
  Sex: Female

DRUGS (24)
  1. MIRAPEX [Suspect]
     Indication: PARKINSON'S DISEASE
     Dosage: 1.2 MG, PO
     Route: 048
     Dates: start: 20040205, end: 20040301
  2. VOLTAREN-XR [Suspect]
     Indication: SPONDYLOSIS
     Dosage: 745 MG, PO
     Route: 048
     Dates: start: 20040924, end: 20040301
  3. CEFZON (CEFDINIR) [Suspect]
     Indication: CONTUSION
     Dosage: 300 MG, PO
     Route: 048
     Dates: start: 20040204, end: 20040301
  4. MUCOSTA (REBAMIPDIE) (TA) [Suspect]
     Indication: PROPHYLAXIS
     Dosage: 300 MG, PO
     Route: 048
     Dates: start: 20040204, end: 20040301
  5. EC DOPARL (MADOPAR) [Concomitant]
  6. FP [Concomitant]
  7. DEPAS (ETIZOLAM) [Concomitant]
  8. NEUZELIN (DOMPERIDONE) (TA) [Concomitant]
  9. ALFAROL (ALFACALCIDOL) (KA) [Concomitant]
  10. ACINON (NIZATIDIENE) (KA) [Concomitant]
  11. SENNOSIDE (TA) [Concomitant]
  12. BIOFERMIN (BIOFERIN) (PL) [Concomitant]
  13. DIART(AZOSEMIDE) (TA) [Concomitant]
  14. MOHRUS TAPE (CP) [Concomitant]
  15. ADOFEED (FLURBIPROFEN) (CP) [Concomitant]
  16. ELCITONIN (ELCATONIN) (AM) [Concomitant]
  17. NEURONTIN (ORGAN LYSTATEM STANDARDIZED) (TA) [Concomitant]
  18. GLAKAY (MENATETRENONE) (KA) [Concomitant]
  19. ASPARA-CA (ASPARTATE CALCIUM) (TA) [Concomitant]
  20. GENTAMICIN (GENTAMICIN SULFATE) (CR) [Concomitant]
  21. ISODINE (POVIDONE-IODINE) (LO) [Concomitant]
  22. GLYCERYN (GLYCEROL) [Concomitant]
  23. INDIGESTON [Concomitant]
  24. LECICARBON (LECICARBON) [Concomitant]

REACTIONS (2)
  - NEPHROTIC SYNDROME [None]
  - URINE OUTPUT INCREASED [None]
